FAERS Safety Report 4444846-2 (Version None)
Quarter: 2004Q3

REPORT INFORMATION
  Report Type: 
  Country: None (occurrence: None)
  Receive Date: 20040903
  Receipt Date: 20040821
  Transmission Date: 20050211
  Serious: Yes (Other)
  Sender: FDA-Public Use
  Company Number: 2004230314CA

PATIENT
  Age: 40 Year
  Sex: Female
  Weight: 77.5 kg

DRUGS (3)
  1. SOMAVERT [Suspect]
     Indication: ACROMEGALY
     Dosage: 10 MG, QD; SUBCUTANEOUS
     Route: 058
     Dates: start: 20040820, end: 20040821
  2. TYLENOL [Concomitant]
  3. SYNTHROID [Concomitant]

REACTIONS (6)
  - DIFFICULTY IN WALKING [None]
  - MOVEMENT DISORDER [None]
  - MUSCULOSKELETAL STIFFNESS [None]
  - MYALGIA [None]
  - PYREXIA [None]
  - TYPE III IMMUNE COMPLEX MEDIATED REACTION [None]
